FAERS Safety Report 9354591 (Version 3)
Quarter: 2013Q3

REPORT INFORMATION
  Report Type: Spontaneous
  Country: US (occurrence: US)
  Receive Date: 20130618
  Receipt Date: 20130703
  Transmission Date: 20140515
  Serious: Yes (Death, Life-Threatening, Hospitalization)
  Sender: FDA-Public Use
  Company Number: US-MERCK-1306USA006686

PATIENT
  Sex: Male

DRUGS (1)
  1. SAPHRIS [Suspect]
     Route: 060

REACTIONS (1)
  - Death [Fatal]
